FAERS Safety Report 14848865 (Version 1)
Quarter: 2018Q2

REPORT INFORMATION
  Report Type: Spontaneous
  Country: AF (occurrence: AF)
  Receive Date: 20180504
  Receipt Date: 20180504
  Transmission Date: 20180711
  Serious: Yes (Other)
  Sender: FDA-Public Use
  Company Number: AF-JNJFOC-20180436361

PATIENT
  Sex: Female
  Weight: 50 kg

DRUGS (6)
  1. SIRTURO [Suspect]
     Active Substance: BEDAQUILINE FUMARATE
     Indication: TUBERCULOSIS
     Route: 048
     Dates: start: 20180420, end: 20180422
  2. LINEZOLID. [Suspect]
     Active Substance: LINEZOLID
     Indication: TUBERCULOSIS
     Route: 048
     Dates: start: 20180420, end: 20180422
  3. LAMPRENE [Suspect]
     Active Substance: CLOFAZIMINE
     Indication: TUBERCULOSIS
     Route: 048
     Dates: start: 20171102, end: 20180422
  4. CYCLOSERINE. [Suspect]
     Active Substance: CYCLOSERINE
     Indication: TUBERCULOSIS
     Route: 048
     Dates: start: 20180420, end: 20180422
  5. DELTYBA [Suspect]
     Active Substance: DELAMANID
     Indication: TUBERCULOSIS
     Route: 048
     Dates: start: 20180420, end: 20180422
  6. PAS SODIUM [Suspect]
     Active Substance: AMINOSALICYLATE SODIUM
     Indication: TUBERCULOSIS
     Route: 048
     Dates: start: 20180420, end: 20180422

REACTIONS (3)
  - Hypokalaemia [Recovering/Resolving]
  - Arrhythmia [Recovering/Resolving]
  - Electrocardiogram QT prolonged [Recovering/Resolving]

NARRATIVE: CASE EVENT DATE: 20180422
